FAERS Safety Report 15066826 (Version 1)
Quarter: 2018Q2

REPORT INFORMATION
  Report Type: Spontaneous
  Country: US (occurrence: US)
  Receive Date: 20180626
  Receipt Date: 20180626
  Transmission Date: 20180711
  Serious: No
  Sender: FDA-Public Use
  Company Number: US-MYLANLABS-2018M1042455

PATIENT
  Age: 61 Year
  Sex: Female
  Weight: 74.84 kg

DRUGS (3)
  1. ARMODAFINIL TABLETS [Suspect]
     Active Substance: ARMODAFINIL
     Indication: ANXIETY
  2. ARMODAFINIL TABLETS [Suspect]
     Active Substance: ARMODAFINIL
     Indication: DEPRESSION
     Dosage: UNK
     Route: 048
  3. CLONAZEPAM. [Concomitant]
     Active Substance: CLONAZEPAM
     Indication: PRODUCT USED FOR UNKNOWN INDICATION
     Dosage: UNK, PRN

REACTIONS (2)
  - Therapeutic response unexpected [Unknown]
  - Off label use [Recovered/Resolved]
